FAERS Safety Report 9645779 (Version 1)
Quarter: 2013Q4

REPORT INFORMATION
  Report Type: Spontaneous
  Country: US (occurrence: None)
  Receive Date: 20131024
  Receipt Date: 20131024
  Transmission Date: 20140711
  Serious: Yes (Life-Threatening, Hospitalization)
  Sender: FDA-Public Use
  Company Number: None

PATIENT
  Age: 87 Year
  Sex: Male
  Weight: 62.5 kg

DRUGS (14)
  1. ATORVASTATIN 80 MG [Suspect]
     Indication: HYPERLIPIDAEMIA
     Dosage: 1 TAB
     Route: 048
  2. LEVOTHYROXINE 25 MG [Concomitant]
  3. PROTONIX 20 MG [Concomitant]
  4. HCTZ 25 MG [Concomitant]
  5. MELOXICAM 14 MG [Concomitant]
  6. PLAVIX 75 MG [Concomitant]
  7. ISOSORBIDE MONITRATE 30 MG [Concomitant]
  8. METOPROLOL TARTRATE 24 MG [Concomitant]
  9. GLIPIZIDE 10 MG [Concomitant]
  10. GEMFIBROZIL 600 MG [Concomitant]
  11. LASIX 20 MG [Concomitant]
  12. LOSARTAN 50 MG [Concomitant]
  13. FERRUOS SULFATE 325 MG [Concomitant]
  14. ASA 325 MG [Concomitant]

REACTIONS (3)
  - Pain in extremity [None]
  - Muscle spasms [None]
  - Rhabdomyolysis [None]
